FAERS Safety Report 15552650 (Version 3)
Quarter: 2018Q4

REPORT INFORMATION
  Report Type: Spontaneous
  Country: JP (occurrence: JP)
  Receive Date: 20181025
  Receipt Date: 20181113
  Transmission Date: 20190205
  Serious: Yes (Hospitalization)
  Sender: FDA-Public Use
  Company Number: JP-TEVA-2018-JP-966290

PATIENT
  Age: 9 Decade
  Sex: Male
  Weight: 49 kg

DRUGS (10)
  1. SENNOSIDE [Concomitant]
     Active Substance: SENNOSIDES
     Dosage: 48 MILLIGRAM DAILY;
     Route: 065
  2. L-ASPARAGINE ACID POTASSIUM [Concomitant]
     Dosage: 2 DOSAGE FORMS DAILY; DOSE: 300MG IN 2 TABLETS ONCE DAILY
     Route: 065
  3. GLYCYRRHIZIC ACID [Concomitant]
     Active Substance: GLYCYRRHIZIN
     Route: 065
  4. DUTASTERIDE. [Concomitant]
     Active Substance: DUTASTERIDE
     Dosage: .5 MILLIGRAM DAILY;
     Route: 065
  5. MOSAPRIDE CITRATE [Concomitant]
     Active Substance: MOSAPRIDE CITRATE
     Dosage: THREE TIMES DAILY
     Route: 065
  6. LEVOFLOXACIN. [Suspect]
     Active Substance: LEVOFLOXACIN
     Indication: BILE DUCT CANCER RECURRENT
     Dosage: 250 MILLIGRAM DAILY;
     Route: 065
  7. VITAMIN C [Concomitant]
     Active Substance: ASCORBIC ACID
     Route: 042
  8. PREDNISOLONE. [Suspect]
     Active Substance: PREDNISOLONE
     Route: 065
  9. FLECAINIDE [Suspect]
     Active Substance: FLECAINIDE
     Indication: VENTRICULAR EXTRASYSTOLES
     Dosage: 100 MILLIGRAM DAILY; AFTER MEALS, MORNING AND NIGHT
     Route: 065
  10. URSODEOXYCHOLIC ACID [Concomitant]
     Active Substance: URSODIOL
     Dosage: THREE TIMES DAILY
     Route: 065

REACTIONS (2)
  - Cardiac arrest [Recovered/Resolved]
  - Electrocardiogram QT prolonged [Recovered/Resolved]
